FAERS Safety Report 23518426 (Version 4)
Quarter: 2025Q4

REPORT INFORMATION
  Report Type: Spontaneous
  Country: JP (occurrence: JP)
  Receive Date: 20240213
  Receipt Date: 20251119
  Transmission Date: 20260117
  Serious: Yes (Death, Hospitalization)
  Sender: ELI LILLY AND COMPANY
  Company Number: JP-ELI_LILLY_AND_COMPANY-JP202402004788

PATIENT
  Age: 71 Year
  Sex: Male
  Weight: 52 kg

DRUGS (3)
  1. NECITUMUMAB [Suspect]
     Active Substance: NECITUMUMAB
     Indication: Lung squamous cell carcinoma stage III
     Dosage: 800 MG, UNKNOWN
     Route: 041
     Dates: start: 20231220, end: 20240124
  2. GEMCITABINE HYDROCHLORIDE [Concomitant]
     Active Substance: GEMCITABINE HYDROCHLORIDE
     Indication: Lung squamous cell carcinoma stage III
     Dosage: UNK
     Route: 041
     Dates: start: 20231220, end: 20240124
  3. CISPLATIN [Concomitant]
     Active Substance: CISPLATIN
     Indication: Lung squamous cell carcinoma stage III
     Dosage: UNK
     Route: 041
     Dates: start: 20231220, end: 20240124

REACTIONS (3)
  - Tumour haemorrhage [Fatal]
  - C-reactive protein increased [Unknown]
  - Infected neoplasm [Unknown]

NARRATIVE: CASE EVENT DATE: 20240131
